FAERS Safety Report 4662663-5 (Version None)
Quarter: 2005Q2

REPORT INFORMATION
  Report Type: 
  Country: None (occurrence: None)
  Receive Date: 20050512
  Receipt Date: 20050422
  Transmission Date: 20051028
  Serious: Yes (Other)
  Sender: FDA-Public Use
  Company Number: GBS050216689

PATIENT
  Age: 6 Year
  Sex: Male
  Weight: 27 kg

DRUGS (4)
  1. STRATTERA [Suspect]
     Indication: ATTENTION DEFICIT/HYPERACTIVITY DISORDER
     Dosage: 25 MG DAY
     Dates: start: 20041208, end: 20050124
  2. CONCERTA XL 9METHYLPHENIDATE HYDROCHLORIDE) [Concomitant]
  3. DIMETAPP [Concomitant]
  4. ANTIBIOTICS [Concomitant]

REACTIONS (3)
  - NIGHTMARE [None]
  - THERAPY NON-RESPONDER [None]
  - TIC [None]
